FAERS Safety Report 12886343 (Version 1)
Quarter: 2016Q4

REPORT INFORMATION
  Report Type: Spontaneous
  Country: US (occurrence: US)
  Receive Date: 20161026
  Receipt Date: 20161026
  Transmission Date: 20170207
  Serious: Yes (Other)
  Sender: FDA-Public Use
  Company Number: US-BAYER-2016-205721

PATIENT
  Age: 35 Year
  Sex: Female
  Weight: 97.52 kg

DRUGS (1)
  1. MIRENA [Suspect]
     Active Substance: LEVONORGESTREL
     Dosage: 20 MCG/24HR, CONT
     Route: 015
     Dates: start: 20150729, end: 20161012

REACTIONS (9)
  - Rash generalised [Recovered/Resolved]
  - Food craving [Recovered/Resolved]
  - Abdominal distension [None]
  - Genital haemorrhage [Not Recovered/Not Resolved]
  - Alopecia [Recovering/Resolving]
  - Mood swings [Recovered/Resolved]
  - Acne [Not Recovered/Not Resolved]
  - Vaginal haemorrhage [Not Recovered/Not Resolved]
  - Weight increased [Not Recovered/Not Resolved]

NARRATIVE: CASE EVENT DATE: 20151001
